FAERS Safety Report 10382514 (Version 10)
Quarter: 2021Q2

REPORT INFORMATION
  Report Type: Report from Study
  Country: US (occurrence: US)
  Receive Date: 20140813
  Receipt Date: 20210406
  Transmission Date: 20210716
  Serious: Yes (Hospitalization, Disabling, Other)
  Sender: FDA-Public Use
  Company Number: US-SA-2014SA088067

PATIENT
  Age: 40 Year
  Sex: Female

DRUGS (4)
  1. TERIFLUNOMIDE. [Suspect]
     Active Substance: TERIFLUNOMIDE
     Dosage: 14 MG,QD
     Route: 048
     Dates: end: 202101
  2. TERIFLUNOMIDE. [Suspect]
     Active Substance: TERIFLUNOMIDE
     Dosage: 14 MG,QD
     Route: 048
     Dates: start: 20160317
  3. TERIFLUNOMIDE. [Suspect]
     Active Substance: TERIFLUNOMIDE
     Indication: MULTIPLE SCLEROSIS
     Dosage: 14 MG,QD
     Route: 048
     Dates: start: 20130801, end: 20140601
  4. TERIFLUNOMIDE. [Suspect]
     Active Substance: TERIFLUNOMIDE
     Dosage: 14 MG,QD
     Route: 048
     Dates: start: 20150617, end: 20151130

REACTIONS (20)
  - Multiple sclerosis relapse [Unknown]
  - Peripheral coldness [Not Recovered/Not Resolved]
  - Multiple sclerosis [Unknown]
  - Hypoaesthesia [Recovering/Resolving]
  - Asthenia [Recovering/Resolving]
  - Pain of skin [Not Recovered/Not Resolved]
  - Malaise [Not Recovered/Not Resolved]
  - Dizziness [Not Recovered/Not Resolved]
  - Fall [Recovered/Resolved]
  - Musculoskeletal stiffness [Unknown]
  - Peripheral swelling [Unknown]
  - Peroneal nerve palsy [Not Recovered/Not Resolved]
  - Disability [Not Recovered/Not Resolved]
  - Hypoaesthesia [Not Recovered/Not Resolved]
  - Pain [Not Recovered/Not Resolved]
  - Feeling cold [Not Recovered/Not Resolved]
  - Gait disturbance [Not Recovered/Not Resolved]
  - Alopecia [Recovering/Resolving]
  - Nasopharyngitis [Not Recovered/Not Resolved]
  - Paraesthesia [Not Recovered/Not Resolved]

NARRATIVE: CASE EVENT DATE: 201402
